FAERS Safety Report 7085979-4 (Version None)
Quarter: 2010Q4

REPORT INFORMATION
  Report Type: 
  Country: None (occurrence: None)
  Receive Date: 20101027
  Receipt Date: 20101027
  Transmission Date: 20110411
  Serious: Yes (Hospitalization)
  Sender: FDA-Public Use
  Company Number: AE 2010-312

PATIENT
  Sex: Female

DRUGS (4)
  1. URELLE (AZUR PHARMA) [Suspect]
     Indication: URINARY TRACT INFECTION
     Dosage: 2 TABLETS DAILY PO
     Route: 048
     Dates: start: 20100727, end: 20100729
  2. NEXIUM [Concomitant]
  3. SYNTHROID [Concomitant]
  4. ATIVAN [Concomitant]

REACTIONS (3)
  - DIZZINESS [None]
  - FALL [None]
  - HEAD INJURY [None]
